FAERS Safety Report 10576117 (Version 2)
Quarter: 2014Q4

REPORT INFORMATION
  Report Type: Spontaneous
  Country: US (occurrence: None)
  Receive Date: 20141107
  Receipt Date: 20141121
  Transmission Date: 20150529
  Serious: Yes (Congenital Anomaly)
  Sender: FDA-Public Use
  Company Number: US2014GSK016070

PATIENT
  Sex: Male

DRUGS (6)
  1. VIRAMUNE [Suspect]
     Active Substance: NEVIRAPINE
     Indication: HIV INFECTION
     Route: 064
  2. FLU VACCINE [Concomitant]
     Active Substance: INFLUENZA VIRUS VACCINE
  3. LAMIVUDINE AND ZIDOVUDINE [Suspect]
     Active Substance: LAMIVUDINE\ZIDOVUDINE
     Indication: HIV INFECTION
     Route: 064
  4. BETAMETHASONE [Concomitant]
     Active Substance: BETAMETHASONE
  5. METRONIDAZOLE. [Concomitant]
     Active Substance: METRONIDAZOLE
  6. ZIDOVUDINE (ZIDOVUDINE) UNKNOWN) [Suspect]
     Active Substance: ZIDOVUDINE
     Indication: HIV INFECTION
     Dosage: SINGLE
     Route: 064
     Dates: start: 20140419, end: 20140419

REACTIONS (5)
  - Cyst [None]
  - Twin pregnancy [None]
  - Foetal exposure during pregnancy [None]
  - Premature baby [None]
  - Congenital anomaly [None]

NARRATIVE: CASE EVENT DATE: 20140404
